FAERS Safety Report 15003974 (Version 1)
Quarter: 2018Q2

REPORT INFORMATION
  Report Type: Spontaneous
  Country: US (occurrence: US)
  Receive Date: 20180613
  Receipt Date: 20180613
  Transmission Date: 20180711
  Serious: Yes (Hospitalization, Other)
  Sender: FDA-Public Use
  Company Number: US-ACCORD-068186

PATIENT
  Age: 56 Year
  Sex: Female
  Weight: 97.52 kg

DRUGS (3)
  1. LITHIUM. [Suspect]
     Active Substance: LITHIUM
     Indication: BIPOLAR DISORDER
     Dosage: 450 MG ONCE IN THE MORNING, REDUCED TO  300 MG
  2. ARIPIPRAZOLE. [Suspect]
     Active Substance: ARIPIPRAZOLE
     Indication: BIPOLAR DISORDER
     Dosage: REDUCED TO 5MG/DAY
  3. QUETIAPINE. [Suspect]
     Active Substance: QUETIAPINE
     Indication: BIPOLAR DISORDER

REACTIONS (5)
  - Sleep apnoea syndrome [Unknown]
  - Respiratory failure [Unknown]
  - Condition aggravated [Unknown]
  - Weight increased [Unknown]
  - Pulmonary hypertension [Unknown]
